FAERS Safety Report 4886936-6 (Version None)
Quarter: 2006Q1

REPORT INFORMATION
  Report Type: 
  Country: None (occurrence: None)
  Receive Date: 20060118
  Receipt Date: 20060106
  Transmission Date: 20060701
  Serious: Yes (Hospitalization)
  Sender: FDA-Public Use
  Company Number: 163-C5013-06010172

PATIENT
  Age: 66 Year
  Sex: Male
  Weight: 95.4822 kg

DRUGS (12)
  1. REVLIMID [Suspect]
     Indication: MULTIPLE MYELOMA
     Dosage: 25 MG, QD ON DAYS 1-21, Q28D, ORAL
     Route: 048
     Dates: start: 20051209
  2. DEXAMETHASONE TAB [Suspect]
     Indication: MULTIPLE MYELOMA
     Dosage: PULSE DOSING, ORAL
     Route: 048
  3. BIAXIN [Suspect]
     Indication: ANTIBIOTIC PROPHYLAXIS
     Dosage: 250 MG, QD, ORAL
     Route: 048
     Dates: start: 20051208
  4. DIGOXIN [Suspect]
     Indication: ATRIAL FIBRILLATION
     Dosage: 0.25 MG, QD
     Dates: end: 20060101
  5. LEVOXYL [Concomitant]
  6. ALLOPURINOL [Concomitant]
  7. NYSTATIN [Concomitant]
  8. DILTIAZEM HCL [Concomitant]
  9. LISINOPRIL [Concomitant]
  10. WARFARIN [Concomitant]
  11. ADVAIR DISKUS 100/50 [Concomitant]
  12. ALBUTEROL [Concomitant]

REACTIONS (11)
  - ASTHENIA [None]
  - BALANCE DISORDER [None]
  - BLOOD CREATININE INCREASED [None]
  - BLOOD GLUCOSE INCREASED [None]
  - BLOOD UREA INCREASED [None]
  - CONFUSIONAL STATE [None]
  - COUGH [None]
  - MUSCLE SPASMS [None]
  - PLATELET COUNT DECREASED [None]
  - PROTHROMBIN TIME PROLONGED [None]
  - THERAPEUTIC AGENT TOXICITY [None]
